FAERS Safety Report 9866776 (Version 1)
Quarter: 2014Q1

REPORT INFORMATION
  Report Type: Spontaneous
  Country: US (occurrence: US)
  Receive Date: 20140204
  Receipt Date: 20140204
  Transmission Date: 20141002
  Serious: No
  Sender: FDA-Public Use
  Company Number: US-009507513-1401USA005726

PATIENT
  Age: 78 Year
  Sex: Female

DRUGS (3)
  1. INTEGRILIN [Suspect]
     Indication: ANTIPLATELET THERAPY
     Dosage: WAS INITIATED FOR 7 DAYS TO BE TURNED OFF AT MIDNIGHT IN PREPARATION FOR SURGERY ON DAY 8
     Route: 042
  2. ASPIRIN [Suspect]
     Indication: ANTIPLATELET THERAPY
  3. CLOPIDOGREL [Suspect]
     Indication: ANTIPLATELET THERAPY

REACTIONS (1)
  - Thrombosis in device [Recovered/Resolved]
